FAERS Safety Report 7785546-0 (Version None)
Quarter: 2011Q3

REPORT INFORMATION
  Report Type: 
  Country: None (occurrence: None)
  Receive Date: 20110929
  Receipt Date: 20101124
  Transmission Date: 20111222
  Serious: No
  Sender: FDA-Public Use
  Company Number: US-GLAXOSMITHKLINE-A0896386A

PATIENT
  Age: 25 Year
  Sex: Female

DRUGS (2)
  1. RELENZA [Suspect]
     Indication: INFLUENZA
     Dosage: 1PUFF TWICE PER DAY
     Route: 055
     Dates: start: 20101119, end: 20101121
  2. SUDAFED 12 HOUR [Concomitant]

REACTIONS (4)
  - PRURITUS [None]
  - PRURITUS GENITAL [None]
  - ABDOMINAL PAIN UPPER [None]
  - TONGUE DISCOLOURATION [None]
